FAERS Safety Report 8586641-9 (Version None)
Quarter: 2012Q3

REPORT INFORMATION
  Report Type: 
  Country: None (occurrence: None)
  Receive Date: 20120810
  Receipt Date: 20120803
  Transmission Date: 20120928
  Serious: Yes (Hospitalization)
  Sender: FDA-Public Use
  Company Number: US-ABBOTT-12P-163-0942576-00

PATIENT
  Sex: Male
  Weight: 107.14 kg

DRUGS (9)
  1. TEGRETOL [Concomitant]
     Indication: EPILEPSY
  2. FUROSEMIDE [Concomitant]
     Indication: PRODUCT USED FOR UNKNOWN INDICATION
  3. DILANTIN [Concomitant]
     Indication: EPILEPSY
  4. UNKNOWN MEDICATIONS [Concomitant]
     Indication: PRODUCT USED FOR UNKNOWN INDICATION
  5. HUMIRA [Suspect]
     Indication: RHEUMATOID ARTHRITIS
     Dates: start: 20110301, end: 20110701
  6. WATER PILL [Concomitant]
     Indication: PRODUCT USED FOR UNKNOWN INDICATION
  7. ZAROXOLYN [Concomitant]
     Indication: PRODUCT USED FOR UNKNOWN INDICATION
  8. PREDNISONE TAB [Concomitant]
     Indication: PRODUCT USED FOR UNKNOWN INDICATION
  9. MYSLIN [Concomitant]
     Indication: EPILEPSY

REACTIONS (5)
  - HYPOKALAEMIA [None]
  - WEIGHT DECREASED [None]
  - URINARY TRACT INFECTION [None]
  - LOSS OF CONSCIOUSNESS [None]
  - HYPONATRAEMIA [None]
